FAERS Safety Report 8925035 (Version 1)
Quarter: 2012Q4

REPORT INFORMATION
  Report Type: 
  Country: US (occurrence: US)
  Receive Date: 20121126
  Receipt Date: 20121126
  Transmission Date: 20130627
  Serious: Yes (Hospitalization)
  Sender: FDA-Public Use
  Company Number: US-BAYER-2012-121296

PATIENT
  Age: 49 Year
  Sex: Female

DRUGS (7)
  1. YAZ [Suspect]
     Indication: MENSTRUAL IRREGULARITY
  2. YAZ [Suspect]
     Indication: MENORRHAGIA
  3. IMITREX [Concomitant]
     Dosage: 100 mg, UNK
     Dates: start: 20071001
  4. LEVOTHYROXINE [Concomitant]
     Dosage: 150 mg, UNK
     Dates: start: 20071022
  5. ASPIRIN [Concomitant]
     Indication: HEADACHE
  6. METOPROLOL [Concomitant]
  7. ALBUTEROL [Concomitant]

REACTIONS (2)
  - Deep vein thrombosis [Recovered/Resolved]
  - Off label use [None]
